FAERS Safety Report 8157345-1 (Version None)
Quarter: 2012Q1

REPORT INFORMATION
  Report Type: 
  Country: None (occurrence: None)
  Receive Date: 20120222
  Receipt Date: 20120207
  Transmission Date: 20120608
  Serious: Yes (Hospitalization, Other)
  Sender: FDA-Public Use
  Company Number: US-ROCHE-783988

PATIENT
  Sex: Female
  Weight: 59.02 kg

DRUGS (4)
  1. ACCUTANE [Suspect]
  2. ACCUTANE [Suspect]
     Indication: ACNE
     Route: 048
  3. ACCUTANE [Suspect]
  4. ACCUTANE [Suspect]

REACTIONS (6)
  - INFLAMMATORY BOWEL DISEASE [None]
  - CROHN'S DISEASE [None]
  - SMALL INTESTINAL OBSTRUCTION [None]
  - DEPRESSION [None]
  - FEMALE GENITAL TRACT FISTULA [None]
  - COLITIS ULCERATIVE [None]
